FAERS Safety Report 8775907 (Version 1)
Quarter: 2012Q4

REPORT INFORMATION
  Report Type: 
  Country: US (occurrence: US)
  Receive Date: 20120910
  Receipt Date: 20120910
  Transmission Date: 20130627
  Serious: No
  Sender: FDA-Public Use
  Company Number: US-ASTRAZENECA-2012SE59893

PATIENT
  Age: 62 Year
  Sex: Male

DRUGS (3)
  1. NEXIUM [Suspect]
     Route: 048
  2. OMEPRAZOLE [Suspect]
     Route: 048
  3. CRESTOR [Suspect]
     Route: 048

REACTIONS (7)
  - Arthritis [Unknown]
  - Diabetes mellitus [Unknown]
  - Hypertension [Unknown]
  - Renal disorder [Unknown]
  - Hernia [Unknown]
  - Abdominal distension [Unknown]
  - Drug ineffective [Unknown]
